FAERS Safety Report 8005981-5 (Version None)
Quarter: 2011Q4

REPORT INFORMATION
  Report Type: 
  Country: None (occurrence: None)
  Receive Date: 20111225
  Receipt Date: 20111213
  Transmission Date: 20120403
  Serious: Yes (Other)
  Sender: FDA-Public Use
  Company Number: JP-AMGEN-JPNCT2011068262

PATIENT
  Age: 48 Year
  Sex: Female
  Weight: 69 kg

DRUGS (15)
  1. NORVASC [Concomitant]
     Indication: HYPERTENSION
     Dosage: UNCERTAINTY
     Route: 048
  2. LASIX [Concomitant]
     Indication: HYPERTENSION
     Dosage: UNCERTAINTY
     Route: 065
  3. FOSAMAC 5MG [Concomitant]
     Indication: OSTEOPOROSIS
     Dosage: UNCERTAINTY
     Route: 048
  4. DIOVAN [Concomitant]
     Indication: HYPERTENSION
     Dosage: UNCERTAINTY
     Route: 048
  5. MAGNESIUM OXIDE [Concomitant]
     Indication: CONSTIPATION
     Dosage: UNCERTAINTY
     Route: 048
  6. MOHRUS TAPE [Concomitant]
     Indication: BACK PAIN
     Dosage: UNCERTAINTY
     Route: 061
  7. DEPAS [Concomitant]
     Indication: ANXIETY DISORDER
     Dosage: UNCERTAINTY
     Route: 048
  8. ALLOPURINOL [Concomitant]
     Indication: HYPERURICAEMIA
     Dosage: UNCERTAINTY
     Route: 048
  9. LAXOBERON [Concomitant]
     Indication: CONSTIPATION
     Dosage: UNCERTAINTY
     Route: 048
  10. ADONA [Concomitant]
     Indication: IDIOPATHIC THROMBOCYTOPENIC PURPURA
     Dosage: UNK
     Route: 048
     Dates: start: 20100604, end: 20110703
  11. ALOCHINON [Concomitant]
     Indication: HYPERTENSION
     Dosage: UNCERTAINTY
     Route: 048
  12. NASANYL [Concomitant]
     Indication: MENORRHAGIA
     Dosage: UNCERTAINTY
     Route: 045
  13. MUCOSTA [Concomitant]
     Indication: GASTRITIS
     Dosage: UNCERTAINTY
     Route: 048
  14. ROMIPLOSTIM - KHK [Suspect]
     Indication: IDIOPATHIC THROMBOCYTOPENIC PURPURA
     Dosage: UNK UNK, QWK
     Route: 058
     Dates: start: 20110502
  15. LANSOPRAZOLE [Concomitant]
     Indication: GASTROOESOPHAGEAL REFLUX DISEASE
     Dosage: UNCERTAINTY
     Route: 048

REACTIONS (4)
  - ANAEMIA [None]
  - LIVER DISORDER [None]
  - GASTROINTESTINAL HAEMORRHAGE [None]
  - CEREBRAL HAEMORRHAGE [None]
